FAERS Safety Report 8007283 (Version 4)
Quarter: 2012Q4

REPORT INFORMATION
  Report Type: 
  Country: US (occurrence: US)
  Receive Date: 20110624
  Receipt Date: 20120830
  Transmission Date: 20130627
  Serious: Yes (Hospitalization, Other)
  Sender: FDA-Public Use
  Company Number: US-CELGENEUS-163-21880-11061789

PATIENT
  Age: 64 None
  Sex: Male
  Weight: 95.7 kg

DRUGS (5)
  1. REVLIMID [Suspect]
     Indication: MULTIPLE MYELOMA WITHOUT MENTION OF REMISSION
     Dosage: 25 Milligram
     Route: 048
     Dates: start: 20110513, end: 2011
  2. REVLIMID [Suspect]
     Dosage: 10 Milligram
     Route: 048
     Dates: start: 201203
  3. VELCADE [Suspect]
     Indication: MYELOMA
     Route: 058
     Dates: start: 20110523
  4. DEXAMETHASONE [Concomitant]
     Indication: MYELOMA
     Dosage: 2.8571 Milligram
     Route: 048
     Dates: start: 20110523
  5. ASPIRIN [Concomitant]
     Indication: THROMBOSIS PROPHYLAXIS
     Dosage: 81 Milligram
     Route: 065

REACTIONS (5)
  - Ileus paralytic [Unknown]
  - Spinal compression fracture [Unknown]
  - Renal failure [Unknown]
  - Deep vein thrombosis [Unknown]
  - Oedema peripheral [Unknown]
